FAERS Safety Report 14125258 (Version 1)
Quarter: 2017Q4

REPORT INFORMATION
  Report Type: Spontaneous
  Country: US (occurrence: US)
  Receive Date: 20171025
  Receipt Date: 20171025
  Transmission Date: 20180321
  Serious: No
  Sender: FDA-Public Use
  Company Number: US-ASTRAZENECA-2017SF07538

PATIENT
  Age: 76 Year
  Sex: Female

DRUGS (1)
  1. SEROQUEL [Suspect]
     Active Substance: QUETIAPINE FUMARATE
     Dosage: 50.0MG UNKNOWN
     Route: 048

REACTIONS (3)
  - Hallucination [Not Recovered/Not Resolved]
  - Drug ineffective [Unknown]
  - Middle insomnia [Not Recovered/Not Resolved]
